FAERS Safety Report 7915432-4 (Version None)
Quarter: 2011Q4

REPORT INFORMATION
  Report Type: 
  Country: None (occurrence: None)
  Receive Date: 20111115
  Receipt Date: 20111104
  Transmission Date: 20120403
  Serious: Yes (Other)
  Sender: FDA-Public Use
  Company Number: PHHY2011ZA099054

PATIENT
  Age: 36 Year
  Sex: Female

DRUGS (4)
  1. ACETYLSALICYLIC ACID SRT [Suspect]
     Route: 042
  2. ENOXAPARIN [Suspect]
     Route: 058
  3. NIFEDIPINE [Suspect]
     Route: 042
  4. ILOPROST [Suspect]
     Route: 042

REACTIONS (2)
  - ISCHAEMIA [None]
  - DISEASE PROGRESSION [None]
